FAERS Safety Report 20890837 (Version 2)
Quarter: 2022Q2

REPORT INFORMATION
  Report Type: Report from Study
  Country: US (occurrence: US)
  Receive Date: 20220530
  Receipt Date: 20220602
  Transmission Date: 20220721
  Serious: Yes (Hospitalization)
  Sender: FDA-Public Use
  Company Number: US-BAUSCH-BL-2022-013248

PATIENT
  Age: 38 Year
  Sex: Male

DRUGS (1)
  1. XIFAXAN [Suspect]
     Active Substance: RIFAXIMIN
     Indication: Encephalopathy
     Route: 065
     Dates: start: 2021

REACTIONS (1)
  - Hernia [Recovered/Resolved]

NARRATIVE: CASE EVENT DATE: 20220101
